FAERS Safety Report 9880960 (Version 1)
Quarter: 2014Q1

REPORT INFORMATION
  Report Type: Spontaneous
  Country: US (occurrence: None)
  Receive Date: 20140204
  Receipt Date: 20140204
  Transmission Date: 20141002
  Serious: Yes (Hospitalization, Other)
  Sender: FDA-Public Use
  Company Number: FK201400346

PATIENT
  Age: 70 Year
  Sex: Female
  Weight: 56.2 kg

DRUGS (4)
  1. LEUCOVORIN [Suspect]
     Indication: ADENOCARCINOMA OF COLON
     Route: 042
     Dates: start: 20130813
  2. FLUOROURACIL (FLUOROURACIL) (FLUOROURACIL) [Suspect]
     Indication: ADENOCARCINOMA OF COLON
     Route: 042
     Dates: start: 20130813
  3. ELOXATIN (OXALIPLATIN) (OXALIPLATIN) [Suspect]
     Indication: ADENOCARCINOMA OF COLON
     Route: 042
     Dates: start: 20130813
  4. CELECOXIB\PLACEBO [Suspect]
     Indication: ADENOCARCINOMA OF COLON
     Dates: start: 20130813

REACTIONS (18)
  - Febrile neutropenia [None]
  - Chills [None]
  - Pyrexia [None]
  - Abdominal pain [None]
  - Anaemia [None]
  - Wound infection [None]
  - White blood cell count decreased [None]
  - Fatigue [None]
  - Malaise [None]
  - Stomatitis [None]
  - Mucosal inflammation [None]
  - Nausea [None]
  - Vomiting [None]
  - Blister [None]
  - Lip swelling [None]
  - Oral pain [None]
  - Odynophagia [None]
  - Dysuria [None]
